FAERS Safety Report 11437265 (Version 1)
Quarter: 2015Q3

REPORT INFORMATION
  Report Type: Spontaneous
  Country: US (occurrence: US)
  Receive Date: 20150821
  Receipt Date: 20150821
  Transmission Date: 20151125
  Serious: No
  Sender: FDA-Public Use
  Company Number: US-ELI_LILLY_AND_COMPANY-US200703005749

PATIENT
  Age: 60 Year
  Sex: Male

DRUGS (4)
  1. HERBAL NOS [Concomitant]
     Active Substance: HERBALS
  2. VITAMINS [Concomitant]
     Active Substance: VITAMINS
  3. LIPITOR [Concomitant]
     Active Substance: ATORVASTATIN CALCIUM
  4. CYMBALTA [Suspect]
     Active Substance: DULOXETINE HYDROCHLORIDE
     Indication: DEPRESSION
     Dosage: 30 MG, UNKNOWN
     Route: 048
     Dates: start: 20070320

REACTIONS (2)
  - Depression [Not Recovered/Not Resolved]
  - Drug effect decreased [Not Recovered/Not Resolved]

NARRATIVE: CASE EVENT DATE: 200703
